FAERS Safety Report 9924917 (Version 2)
Quarter: 2014Q1

REPORT INFORMATION
  Report Type: Spontaneous
  Country: US (occurrence: US)
  Receive Date: 20140226
  Receipt Date: 20140318
  Transmission Date: 20141002
  Serious: No
  Sender: FDA-Public Use
  Company Number: US-009507513-1402USA011920

PATIENT
  Age: 57 Year
  Sex: Female
  Weight: 56.69 kg

DRUGS (6)
  1. OXYTROL FOR WOMEN [Suspect]
     Indication: HYPERTONIC BLADDER
     Dosage: 1 DF, Q4D
     Route: 062
     Dates: start: 20140101, end: 20140203
  2. OXYTROL FOR WOMEN [Suspect]
     Indication: MICTURITION URGENCY
  3. ESTRADIOL [Concomitant]
     Indication: MENOPAUSAL SYMPTOMS
     Dosage: 0.5 MG, UNKNOWN
  4. PROVERA [Concomitant]
     Indication: MENOPAUSAL SYMPTOMS
     Dosage: 2.5 MG, UNK
  5. ASPIRIN [Concomitant]
     Indication: PRODUCT USED FOR UNKNOWN INDICATION
     Dosage: 81 MG, QD
  6. CHOLECALCIFEROL [Concomitant]
     Indication: PRODUCT USED FOR UNKNOWN INDICATION
     Dosage: 1000 MG, QD

REACTIONS (5)
  - Pain [Unknown]
  - Discomfort [Unknown]
  - Drug effect decreased [Unknown]
  - Product packaging issue [Unknown]
  - Product adhesion issue [Unknown]
